FAERS Safety Report 4953629-6 (Version None)
Quarter: 2006Q1

REPORT INFORMATION
  Report Type: 
  Country: None (occurrence: None)
  Receive Date: 20060324
  Receipt Date: 20050930
  Transmission Date: 20060701
  Serious: Yes (Hospitalization, Other)
  Sender: FDA-Public Use
  Company Number: US-MERCK-0510USA01916

PATIENT
  Age: 73 Year
  Sex: Female

DRUGS (1)
  1. VIOXX [Suspect]
     Indication: CERVICOBRACHIAL SYNDROME
     Route: 048
     Dates: start: 20030728

REACTIONS (12)
  - ASTHENIA [None]
  - CHILLS [None]
  - CONFUSIONAL STATE [None]
  - DIARRHOEA [None]
  - DIZZINESS [None]
  - FEELING ABNORMAL [None]
  - MYOCARDIAL INFARCTION [None]
  - NAUSEA [None]
  - SUPRAVENTRICULAR TACHYCARDIA [None]
  - SYNCOPE [None]
  - TRANSIENT ISCHAEMIC ATTACK [None]
  - VOMITING [None]
